FAERS Safety Report 8950611 (Version 1)
Quarter: 2012Q4

REPORT INFORMATION
  Report Type: 
  Country: US (occurrence: US)
  Receive Date: 20121207
  Receipt Date: 20121207
  Transmission Date: 20130627
  Serious: Yes (Hospitalization)
  Sender: FDA-Public Use
  Company Number: US-BAYER-2012-127335

PATIENT
  Age: 51 Year
  Sex: Female
  Weight: 65.76 kg

DRUGS (7)
  1. GIANVI [Suspect]
     Dosage: UNK
     Route: 048
     Dates: start: 20100830, end: 20101012
  2. YAZ [Suspect]
     Indication: PERIMENOPAUSAL SYMPTOMS
     Route: 048
  3. ASTHMA/BREATHING MEDICATION [Concomitant]
     Dosage: UNK
     Dates: start: 2004
  4. MYLANTA [CALCIUM CARBONATE] [Concomitant]
  5. ROLAIDS [CALCIUM CARBONATE,MAGNESIUM HYDROXIDE] [Concomitant]
  6. IBUPROFEN [Concomitant]
  7. TORADOL [Concomitant]
     Indication: PAIN
     Dosage: 30 mg, UNK

REACTIONS (3)
  - Pulmonary embolism [Recovered/Resolved]
  - Pulmonary infarction [Recovered/Resolved]
  - Chest pain [Recovered/Resolved]
